FAERS Safety Report 26059849 (Version 1)
Quarter: 2025Q4

REPORT INFORMATION
  Report Type: Spontaneous
  Country: US (occurrence: None)
  Receive Date: 20251118
  Receipt Date: 20251118
  Transmission Date: 20260117
  Serious: Yes (Life-Threatening, Hospitalization, Disabling, Other)
  Sender: FDA-CTU
  Company Number: None

PATIENT
  Age: 45 Year
  Sex: Male
  Weight: 112.05 kg

DRUGS (16)
  1. XELODA [Suspect]
     Active Substance: CAPECITABINE
     Indication: Adenocarcinoma of appendix
     Dosage: FREQUENCY : TWICE A DAY;?
     Route: 048
     Dates: start: 20250915, end: 20251019
  2. OXALIPLATIN [Suspect]
     Active Substance: OXALIPLATIN
  3. FOLIC ACID [Suspect]
     Active Substance: FOLIC ACID
  4. Acetometophan (Tylenol) 500 MG TAB [Concomitant]
  5. Albuterol (PROAIR/PROVENTIL/VENTOLIN) 90 mcg/actuation Inhl HFAA [Concomitant]
  6. amLODIPine (NORVASC) 10 mg Oral [Concomitant]
  7. CAPECITABINE (XELODA) 500 MG TAB DR.R 4,500 mg (2500 mg AM, 2000 mg PM [Concomitant]
  8. Diphenoxylate/Atropine (Lomotil) 2.5 Mg Tab [Concomitant]
  9. LAMOTRIGINE 150 MG TAB TORR 150 mg [Concomitant]
  10. LisinoprilhydroCHLOROthiazide (PRINZIDE/ZESTORETIC) 10-12.5 mg [Concomitant]
  11. Methocarbamol (ROBAXIN) 500 mg Oral [Concomitant]
  12. Mirtazapine (REMERON) 15 mg Oral Tab 30 mg [Concomitant]
  13. ONDANSETRON (ZOFRAN) 8 MG [Concomitant]
  14. Pregabalin (LYRICA) 25 mg Oral Cap 50 mg [Concomitant]
  15. Symbicort 160-4.5 mcg/actuation Inhl HFAA [Concomitant]
  16. Ferrous Sulfate 65 mg [Concomitant]

REACTIONS (14)
  - Toxicity to various agents [None]
  - Diarrhoea [None]
  - Vomiting [None]
  - Nausea [None]
  - SARS-CoV-2 antibody test positive [None]
  - Fall [None]
  - Asthenia [None]
  - Dehydration [None]
  - Confusional state [None]
  - Mobility decreased [None]
  - Incontinence [None]
  - Drug ineffective [None]
  - Pruritus [None]
  - Anxiety [None]

NARRATIVE: CASE EVENT DATE: 20250920
